FAERS Safety Report 9022340 (Version 5)
Quarter: 2013Q4

REPORT INFORMATION
  Report Type: Report from Study
  Country: US (occurrence: US)
  Receive Date: 20130118
  Receipt Date: 20131101
  Transmission Date: 20140711
  Serious: No
  Sender: FDA-Public Use
  Company Number: PHEH2013US001421

PATIENT
  Sex: Male

DRUGS (5)
  1. TASIGNA [Suspect]
     Indication: CHRONIC MYELOID LEUKAEMIA
     Dosage: 300 MG, BID
     Route: 048
     Dates: start: 20121220
  2. TASIGNA [Suspect]
     Dosage: 300 MG, BID
     Route: 048
     Dates: end: 201309
  3. CIPRO//CIPROFLOXACIN [Suspect]
  4. ARANESP [Concomitant]
  5. SPRYCEL [Concomitant]

REACTIONS (8)
  - Tachycardia [Unknown]
  - Palpitations [Unknown]
  - Myalgia [Unknown]
  - Arthralgia [Unknown]
  - Urticaria [Recovered/Resolved]
  - Rash [Recovering/Resolving]
  - Hypersensitivity [Unknown]
  - Rash generalised [Unknown]
